FAERS Safety Report 25077053 (Version 2)
Quarter: 2025Q2

REPORT INFORMATION
  Report Type: Spontaneous
  Country: FR (occurrence: FR)
  Receive Date: 20250314
  Receipt Date: 20250613
  Transmission Date: 20250716
  Serious: Yes (Death, Other)
  Sender: JOHNSON AND JOHNSON
  Company Number: FR-JNJFOC-20250314712

PATIENT
  Age: 63 Year
  Sex: Male
  Weight: 60 kg

DRUGS (4)
  1. RYBREVANT [Suspect]
     Active Substance: AMIVANTAMAB-VMJW
     Indication: Non-small cell lung cancer metastatic
     Route: 065
     Dates: start: 20250122
  2. ALIMTA [Suspect]
     Active Substance: PEMETREXED DISODIUM
     Indication: Product used for unknown indication
     Route: 065
     Dates: start: 20250122
  3. CARBOPLATIN [Suspect]
     Active Substance: CARBOPLATIN
     Indication: Product used for unknown indication
     Route: 065
     Dates: start: 20250122
  4. OSIMERTINIB [Concomitant]
     Active Substance: OSIMERTINIB
     Indication: Non-small cell lung cancer

REACTIONS (3)
  - Respiratory distress [Fatal]
  - Non-small cell lung cancer [Fatal]
  - Pneumothorax [Unknown]
